FAERS Safety Report 23234573 (Version 1)
Quarter: 2023Q4

REPORT INFORMATION
  Report Type: Report from Study
  Country: PL (occurrence: PL)
  Receive Date: 20231128
  Receipt Date: 20231128
  Transmission Date: 20240110
  Serious: Yes (Hospitalization)
  Sender: FDA-Public Use
  Company Number: PL-ASTELLAS-2023US034222

PATIENT
  Age: 66 Year
  Sex: Male

DRUGS (2)
  1. ENFORTUMAB VEDOTIN [Suspect]
     Active Substance: ENFORTUMAB VEDOTIN
     Indication: Bladder cancer
     Dosage: 1.25 MG/KG, EVERY 3 WEEKS (ON DAYS 1 AND 8)
     Route: 042
     Dates: start: 20230911, end: 20230918
  2. PEMBROLIZUMAB [Suspect]
     Active Substance: PEMBROLIZUMAB
     Indication: Bladder cancer
     Route: 042
     Dates: start: 20230911, end: 20230911

REACTIONS (1)
  - Immune-mediated nephritis [Recovering/Resolving]

NARRATIVE: CASE EVENT DATE: 20231013
